FAERS Safety Report 14128583 (Version 1)
Quarter: 2017Q4

REPORT INFORMATION
  Report Type: Report from Study
  Country: None (occurrence: CA)
  Receive Date: 20171026
  Receipt Date: 20171026
  Transmission Date: 20180321
  Serious: Yes (Hospitalization)
  Sender: FDA-Public Use
  Company Number: CA-ABBVIE-17S-028-2140225-00

PATIENT
  Sex: Male

DRUGS (2)
  1. ASAPHEN [Concomitant]
     Active Substance: ASPIRIN
     Indication: PRODUCT USED FOR UNKNOWN INDICATION
  2. LUPRON DEPOT [Suspect]
     Active Substance: LEUPROLIDE ACETATE
     Indication: PROSTATE CANCER
     Route: 030
     Dates: start: 20161028

REACTIONS (2)
  - Lung infection [Not Recovered/Not Resolved]
  - Respiratory tract infection [Not Recovered/Not Resolved]
